FAERS Safety Report 25383538 (Version 3)
Quarter: 2025Q3

REPORT INFORMATION
  Report Type: Spontaneous
  Country: US (occurrence: US)
  Receive Date: 20250602
  Receipt Date: 20250708
  Transmission Date: 20251020
  Serious: No
  Sender: SUNOVION
  Company Number: US-SMPA-2025SPA006621AA

PATIENT

DRUGS (12)
  1. ORGOVYX [Suspect]
     Active Substance: RELUGOLIX
     Indication: Prostate cancer
     Dosage: 360 MG, SINGLE
     Route: 048
     Dates: start: 20250512, end: 20250512
  2. ORGOVYX [Suspect]
     Active Substance: RELUGOLIX
     Dosage: 120 MG, QD
     Route: 048
     Dates: start: 20250513
  3. ALLOPURINOL [Concomitant]
     Active Substance: ALLOPURINOL
     Route: 065
  4. ATORVASTATIN [Concomitant]
     Active Substance: ATORVASTATIN
     Route: 065
  5. MINERALS\VITAMINS [Concomitant]
     Active Substance: MINERALS\VITAMINS
     Route: 065
  6. IBUPROFEN [Concomitant]
     Active Substance: IBUPROFEN
     Route: 065
  7. MAGNESIUM GLUCONATE [Concomitant]
     Active Substance: MAGNESIUM GLUCONATE
     Route: 065
  8. GAS RELIEF [Concomitant]
     Active Substance: DIMETHICONE
     Route: 065
  9. HERBALS\SAW PALMETTO [Concomitant]
     Active Substance: HERBALS\SAW PALMETTO
     Route: 065
  10. VITAMIN B2 [Concomitant]
     Active Substance: RIBOFLAVIN
     Route: 065
  11. VITAMIN D3 [Concomitant]
     Active Substance: CHOLECALCIFEROL
     Route: 065
  12. ZINC [Concomitant]
     Active Substance: ZINC
     Route: 065

REACTIONS (10)
  - Blood urine present [Unknown]
  - Micturition urgency [Unknown]
  - Dysuria [Recovered/Resolved]
  - White blood cells urine positive [Unknown]
  - Paraesthesia [Unknown]
  - Nocturia [Unknown]
  - Hypoaesthesia [Unknown]
  - Urinary tract infection [Recovered/Resolved]
  - Hot flush [Unknown]
  - Feeling hot [Unknown]
